FAERS Safety Report 22165521 (Version 5)
Quarter: 2023Q4

REPORT INFORMATION
  Report Type: Report from Study
  Country: DE (occurrence: DE)
  Receive Date: 20230403
  Receipt Date: 20231026
  Transmission Date: 20240110
  Serious: Yes (Hospitalization, Other)
  Sender: FDA-Public Use
  Company Number: None

PATIENT

DRUGS (63)
  1. LAMOTRIGINE [Suspect]
     Active Substance: LAMOTRIGINE
     Indication: Epilepsy
     Dosage: 12.5 MG, QD
     Route: 048
     Dates: start: 20011112, end: 20011114
  2. LAMOTRIGINE [Suspect]
     Active Substance: LAMOTRIGINE
     Dosage: 37.5 MG, QD(3 SEPARATED DOSES )
     Route: 048
     Dates: start: 20011118, end: 20011124
  3. URSODIOL [Suspect]
     Active Substance: URSODIOL
     Indication: Cholelithiasis
     Dosage: 3 DF, QD (3 SEPARATED DOSES)
     Route: 048
     Dates: start: 20011123, end: 20011128
  4. DIFLUCAN [Suspect]
     Active Substance: FLUCONAZOLE
     Indication: Candida infection
     Dosage: UNK
     Route: 042
     Dates: start: 20011118, end: 20011120
  5. LACTULOSE [Suspect]
     Active Substance: LACTULOSE
     Indication: Constipation
     Dosage: 240 ML, QD (4 SEPARATED DOSES)
     Route: 048
     Dates: start: 20011128, end: 20011205
  6. SULFAMETHOXAZOLE\TRIMETHOPRIM [Suspect]
     Active Substance: SULFAMETHOXAZOLE\TRIMETHOPRIM
     Indication: Infection
     Dosage: 1920 MG, QD (2 SEPARATED DOSES)
     Route: 042
     Dates: start: 20011116, end: 20011120
  7. CIPROFLOXACIN [Suspect]
     Active Substance: CIPROFLOXACIN
     Indication: Infection
     Dosage: 400 MG
     Route: 042
     Dates: start: 20011121, end: 20011123
  8. NOVODIGAL (.BETA.-ACETYLDIGOXIN) [Suspect]
     Active Substance: .BETA.-ACETYLDIGOXIN
     Indication: Cardiac failure
     Dosage: 0.2 MG, QD
     Route: 042
     Dates: start: 20011121, end: 20011202
  9. NADROPARIN CALCIUM [Suspect]
     Active Substance: NADROPARIN CALCIUM
     Indication: Thrombosis prophylaxis
     Dosage: UNK, QD
     Route: 058
     Dates: start: 20011117, end: 20011124
  10. NOVALGIN (METAMIZOLE SODIUM) [Suspect]
     Active Substance: METAMIZOLE SODIUM
     Indication: Pain
     Dosage: 2 G (PRN)
     Route: 042
     Dates: start: 20011128, end: 20011202
  11. RANITIDINE HYDROCHLORIDE [Suspect]
     Active Substance: RANITIDINE HYDROCHLORIDE
     Indication: Prophylaxis
     Dosage: UNK
     Route: 042
     Dates: start: 20011123, end: 20011126
  12. CLONAZEPAM [Suspect]
     Active Substance: CLONAZEPAM
     Indication: Epilepsy
     Dosage: 1 MG (PRN)
     Route: 042
     Dates: start: 20011112, end: 20011205
  13. CLONAZEPAM [Suspect]
     Active Substance: CLONAZEPAM
     Indication: Epilepsy
     Dosage: 1 MG (PRN)
     Route: 048
     Dates: start: 20011112, end: 20011205
  14. MIDAZOLAM MALEATE [Suspect]
     Active Substance: MIDAZOLAM MALEATE
     Indication: Pain
     Dosage: UNK
     Route: 042
     Dates: start: 20011113, end: 20011117
  15. HEPARIN SODIUM [Suspect]
     Active Substance: HEPARIN SODIUM
     Indication: Thrombosis prophylaxis
     Dosage: UNK
     Route: 042
     Dates: start: 20011126, end: 20011203
  16. FOSFOMYCIN [Suspect]
     Active Substance: FOSFOMYCIN
     Indication: Infection
     Dosage: UNK
     Route: 042
     Dates: start: 20011130, end: 20011205
  17. TAVOR (LORAZEPAM) [Suspect]
     Active Substance: LORAZEPAM
     Indication: Agitation
     Dosage: 3 MG, QD (3 SEPARATED DOSES)
     Route: 048
     Dates: start: 20011118, end: 20011202
  18. KETAMINE HYDROCHLORIDE [Suspect]
     Active Substance: KETAMINE HYDROCHLORIDE
     Indication: Stupor
     Dosage: UNK
     Route: 042
     Dates: start: 20011205, end: 20011205
  19. LASIX [Suspect]
     Active Substance: FUROSEMIDE
     Indication: Oedema
     Dosage: UNK
     Route: 042
     Dates: end: 20011126
  20. THEOPHYLLINE [Suspect]
     Active Substance: THEOPHYLLINE
     Indication: Bronchospasm
     Dosage: 6 MG, 24D (DOSE: 6 MG/HR)
     Route: 042
     Dates: start: 20011205
  21. AMOXICILLIN\CLAVULANATE POTASSIUM [Suspect]
     Active Substance: AMOXICILLIN\CLAVULANATE POTASSIUM
     Indication: Infection
     Dosage: 6.6 G, QD (3 SEPARATED DOSES)
     Route: 042
     Dates: start: 20011121, end: 20011123
  22. ORNITHINE ASPARTATE [Suspect]
     Active Substance: ORNITHINE ASPARTATE
     Indication: Liver disorder
     Dosage: 4 DF, QD (4 SEPARATED DOSES)
     Route: 048
     Dates: start: 20011124, end: 20011128
  23. CLONIDINE [Suspect]
     Active Substance: CLONIDINE
     Indication: Hypertension
     Dosage: UNK (UNIT DOSE 6 AMPULE)
     Route: 042
     Dates: start: 20011205
  24. CLAFORAN [Suspect]
     Active Substance: CEFOTAXIME SODIUM
     Indication: Infection
     Dosage: 6 G, QD (3 SEPARATED DOSES)
     Route: 042
     Dates: start: 20011130, end: 20011201
  25. MIDAZOLAM MALEATE [Suspect]
     Active Substance: MIDAZOLAM MALEATE
     Indication: Pain
     Dosage: UNK
     Route: 048
     Dates: start: 20011113, end: 20011117
  26. FERRLECIT [Suspect]
     Active Substance: SODIUM FERRIC GLUCONATE COMPLEX
     Indication: Iron deficiency
     Dosage: UNK UNK, QD;DAILY DOSE=1 AMPULE
     Route: 042
     Dates: start: 20011205, end: 20011205
  27. EGG PHOSPHOLIPIDS\GLYCERIN\SOYBEAN OIL [Suspect]
     Active Substance: EGG PHOSPHOLIPIDS\GLYCERIN\SOYBEAN OIL
     Indication: Parenteral nutrition
     Dosage: 250 ML, (DAILY, PRN)
     Route: 042
     Dates: start: 20011121, end: 20011205
  28. ACTRAPID [Suspect]
     Active Substance: INSULIN HUMAN
     Indication: Metabolic disorder
     Dosage: UNK
     Route: 042
     Dates: start: 20011124, end: 20011202
  29. CIPROFLOXACIN [Suspect]
     Active Substance: CIPROFLOXACIN
     Indication: Infection
     Dosage: 400 MG, QD (2 SEPARATED DOSES)
     Route: 042
     Dates: start: 20011121, end: 20011123
  30. XYLOMETAZOLINE HYDROCHLORIDE [Concomitant]
     Active Substance: XYLOMETAZOLINE HYDROCHLORIDE
     Indication: Nasopharyngitis
     Dosage: 3 DF, QD (3 SEPARATED DOSES)
     Route: 045
     Dates: end: 20011130
  31. PIRITRAMIDE [Concomitant]
     Active Substance: PIRITRAMIDE
     Indication: Pain
     Dosage: 3 MG, QID (21 NOV 2001:3 MG, QDS WAS DISCONTINUED)
     Route: 042
     Dates: end: 20211121
  32. PIRITRAMIDE [Concomitant]
     Active Substance: PIRITRAMIDE
     Dosage: 3 MG, TID (05 DEC 2001: 3 MG, TID, PRN WAS STARTED)
     Route: 042
     Dates: start: 20011205
  33. VITAMIN B1 [Concomitant]
     Active Substance: THIAMINE HYDROCHLORIDE
     Indication: Vitamin B1 deficiency
     Dosage: UNK, QD (REPORTED AS 100. 2 SEPARATED DOSES)
     Route: 042
     Dates: end: 20011126
  34. DEXTROSE [Concomitant]
     Active Substance: DEXTROSE\DEXTROSE MONOHYDRATE
     Indication: Fluid replacement
     Dosage: UNK (REPORTED AS : 5% AT 2000 ML / DAY, 40% AT 500 ML / DAY, 70 % AT 2000 ML /DAY)
     Route: 042
     Dates: end: 20011205
  35. SODIUM CHLORIDE [Concomitant]
     Active Substance: SODIUM CHLORIDE
     Indication: Fluid replacement
     Dosage: UNK
     Route: 042
     Dates: end: 20011130
  36. PANTOZOL [Concomitant]
     Active Substance: PANTOPRAZOLE SODIUM
     Indication: Prophylaxis against gastrointestinal ulcer
     Dosage: UNK
     Route: 042
     Dates: end: 20011121
  37. FENTANYL [Concomitant]
     Active Substance: FENTANYL\FENTANYL CITRATE
     Indication: Pain
     Dosage: 1.5 MG (DOSE ALSO REPORTED AS 1.5 MG. DAILY DOSE 3 AMPULE )
     Route: 042
     Dates: start: 20011120, end: 20011120
  38. AKINETON [Concomitant]
     Active Substance: BIPERIDEN HYDROCHLORIDE
     Indication: Extrapyramidal disorder
     Dosage: 5 MG, QD (2 SEPARATED DOSES)
     Route: 042
     Dates: end: 20011113
  39. DOBUTAMINE HYDROCHLORIDE [Concomitant]
     Active Substance: DOBUTAMINE HYDROCHLORIDE
     Indication: Cardiac failure
     Dosage: 250 MG
     Route: 042
     Dates: start: 20011121, end: 20011121
  40. POTASSIUM CHLORIDE [Concomitant]
     Active Substance: POTASSIUM CHLORIDE
     Indication: Metabolic disorder
     Dosage: UNK
     Route: 042
     Dates: end: 20011117
  41. PREDNISOLONE [Concomitant]
     Active Substance: PREDNISOLONE
     Indication: Colitis ulcerative
     Dosage: UNK
     Route: 042
     Dates: end: 20011205
  42. KETAMINE [Concomitant]
     Active Substance: KETAMINE
     Indication: Pain
     Dosage: UNK
     Route: 042
     Dates: start: 20011113, end: 20011117
  43. NYSTATIN [Concomitant]
     Active Substance: NYSTATIN
     Indication: Candida infection
     Dosage: UNK (SEVERAL TIMES A DAY)
     Route: 061
     Dates: end: 20011202
  44. IRON [Concomitant]
     Active Substance: IRON
     Indication: Iron deficiency
     Dosage: UNK, QD;DAILY DOSE=1 AMPULE
     Route: 042
     Dates: end: 20011116
  45. CILASTATIN SODIUM\IMIPENEM [Concomitant]
     Active Substance: CILASTATIN SODIUM\IMIPENEM
     Indication: Infection
     Dosage: 1500 MG, QD (3 SEPARATED DOSES)
     Route: 042
     Dates: start: 20011113
  46. ATOSIL [Concomitant]
     Indication: Agitation
     Dosage: 150 MG, QD (6 SEPARATED DOSES)
     Route: 042
     Dates: end: 20011111
  47. BRICANYL [Concomitant]
     Active Substance: TERBUTALINE SULFATE
     Indication: Respiratory tract congestion
     Dosage: UNK (FREQUENCY: PRN. UNIT DOSE=.5 AMPULE )
     Route: 042
     Dates: end: 20011112
  48. PASPERTIN [Concomitant]
     Indication: Nausea
     Dosage: UNK, QD;DAILY DOSE=1 AMPULE
     Route: 042
     Dates: start: 20011113, end: 20011117
  49. SAB SIMPLEX (SIMETHICONE) [Concomitant]
     Indication: Flatulence
     Dosage: 60 GTT, QD (3 SEPARATED DOSES)
     Route: 048
     Dates: end: 20011120
  50. VALPROIC ACID [Concomitant]
     Active Substance: VALPROIC ACID
     Indication: Epilepsy
     Dosage: 800 MG, QD (2 SEPARATED DOSES)
     Route: 042
     Dates: end: 20011115
  51. CALCIUM [Concomitant]
     Active Substance: CALCIUM
     Indication: Calcium deficiency
     Dosage: 10 ML, QD (DOSAGE REGIMEN:26 NOV 2001:10 ML / DAY OF 20% AMPOULE WAS DISCONTINUED)
     Route: 042
     Dates: end: 20011126
  52. CALCIUM [Concomitant]
     Active Substance: CALCIUM
     Dosage: UNK (1 AMPOULE OF)
     Route: 042
     Dates: start: 20011205
  53. ALBUMIN HUMAN [Concomitant]
     Active Substance: ALBUMIN HUMAN
     Indication: Fluid replacement
     Dosage: 100 ML (100 ML TREATMENT WAS DISCONTINUED ON 16 NOV 2001)
     Route: 042
     Dates: end: 20011116
  54. ALBUMIN HUMAN [Concomitant]
     Active Substance: ALBUMIN HUMAN
     Dosage: 200 ML (200 ML TREATMENT WAS FROM 21 NOV 2001 TO 24 NOV 2+)
     Route: 042
     Dates: start: 20011121, end: 20011124
  55. XANEF [Concomitant]
     Indication: Cardiac failure
     Dosage: UNK
     Route: 048
     Dates: end: 20011202
  56. KONAKION [Concomitant]
     Active Substance: PHYTONADIONE
     Indication: Vitamin K deficiency
     Dosage: 2 MG; DOSE WAS ALSO REPORTED AS 2 MG.
     Route: 042
     Dates: end: 20011113
  57. CLONT (METRONIDAZOL) [Concomitant]
     Indication: Infection
     Dosage: 1500 MG
     Route: 042
     Dates: start: 20011115, end: 20011120
  58. VANCOMYCIN [Concomitant]
     Active Substance: VANCOMYCIN
     Indication: Infection
     Dosage: 500 MG
     Route: 042
     Dates: start: 20011113
  59. NOREPINEPHRINE HYDROCHLORIDE, (+/-)- [Concomitant]
     Active Substance: NOREPINEPHRINE HYDROCHLORIDE, (+/-)-
     Indication: Shock
     Dosage: UNK
     Route: 042
     Dates: start: 20011109, end: 20011203
  60. VITINTRA [Concomitant]
     Active Substance: ERGOCALCIFEROL\PHYTONADIONE\RETINOL\VITAMIN A PALMITATE
     Indication: Parenteral nutrition
     Dosage: UNK,(DOSE: 1 AMPOULE PER DAY, PRN)
     Route: 042
     Dates: start: 20011121, end: 20011205
  61. FERRO-FOLSAN [Concomitant]
     Indication: Iron deficiency
     Dosage: 40 GTT
     Route: 048
     Dates: end: 20011128
  62. PYRIDOXINE [Concomitant]
     Active Substance: PYRIDOXINE
     Indication: Hypovitaminosis
     Dosage: UNK
     Route: 042
     Dates: start: 20011205, end: 20011205
  63. HEPARIN SODIUM [Concomitant]
     Active Substance: HEPARIN SODIUM
     Indication: Thrombosis prophylaxis
     Dosage: UNK
     Route: 058
     Dates: start: 20011109, end: 20011109

REACTIONS (3)
  - Sepsis [Recovered/Resolved]
  - Toxic epidermal necrolysis [Recovered/Resolved]
  - Stevens-Johnson syndrome [Recovered/Resolved]

NARRATIVE: CASE EVENT DATE: 20011128
